FAERS Safety Report 25180321 (Version 1)
Quarter: 2025Q2

REPORT INFORMATION
  Report Type: Spontaneous
  Country: US (occurrence: US)
  Receive Date: 20250409
  Receipt Date: 20250409
  Transmission Date: 20250716
  Serious: Yes (Death, Life-Threatening, Other)
  Sender: AMGEN
  Company Number: US-AMGEN-USASP2025065712

PATIENT
  Age: 48 Year
  Sex: Female

DRUGS (3)
  1. PREDNISONE [Suspect]
     Active Substance: PREDNISONE
     Indication: Systemic lupus erythematosus
     Route: 065
  2. TOFACITINIB [Concomitant]
     Active Substance: TOFACITINIB
     Indication: Systemic lupus erythematosus
  3. LEFLUNOMIDE [Concomitant]
     Active Substance: LEFLUNOMIDE
     Indication: Systemic lupus erythematosus

REACTIONS (7)
  - Illness [Fatal]
  - Pneumocystis jirovecii pneumonia [Unknown]
  - Nocardiosis [Unknown]
  - Acute respiratory distress syndrome [Unknown]
  - Haemophagocytic lymphohistiocytosis [Unknown]
  - Fungaemia [Unknown]
  - Blood triglycerides increased [Unknown]
